FAERS Safety Report 20904614 (Version 1)
Quarter: 2022Q2

REPORT INFORMATION
  Report Type: Spontaneous
  Country: IT (occurrence: IT)
  Receive Date: 20220602
  Receipt Date: 20220602
  Transmission Date: 20220721
  Serious: Yes (Hospitalization)
  Sender: FDA-Public Use
  Company Number: IT-LUPIN PHARMACEUTICALS INC.-2022-07910

PATIENT
  Age: 76 Year
  Sex: Male

DRUGS (21)
  1. RIFAMPIN [Suspect]
     Active Substance: RIFAMPIN
     Indication: Device related infection
     Dosage: 600 MG, QD (TWO HOURS AFTER MEALS)
     Route: 048
     Dates: start: 2018, end: 2019
  2. COLISTIN [Suspect]
     Active Substance: COLISTIN
     Indication: Device related infection
     Dosage: UNK (4.5MU EVERY 12 HOURS)
     Route: 065
     Dates: start: 20181002
  3. COLISTIN [Suspect]
     Active Substance: COLISTIN
     Dosage: DOSE REDUCED TO 2MU EVERY 12 HOURS
     Route: 065
     Dates: start: 2018, end: 2019
  4. CEFTOLOZANE SULFATE\TAZOBACTAM SODIUM [Suspect]
     Active Substance: CEFTOLOZANE SULFATE\TAZOBACTAM SODIUM
     Indication: Device related infection
     Dosage: UNK, (500 MG/250 MG IN 100 ML SALINE)
     Route: 065
     Dates: start: 2019, end: 2019
  5. DAPTOMYCIN [Suspect]
     Active Substance: DAPTOMYCIN
     Indication: Device related infection
     Dosage: UNKNOWN
     Route: 065
     Dates: start: 20170102
  6. DAPTOMYCIN [Suspect]
     Active Substance: DAPTOMYCIN
     Dosage: 500 MG, QD
     Route: 065
     Dates: start: 20181002
  7. DAPTOMYCIN [Suspect]
     Active Substance: DAPTOMYCIN
     Dosage: 300 MG, QD
     Route: 065
     Dates: start: 2018, end: 2019
  8. MEROPENEM [Suspect]
     Active Substance: MEROPENEM
     Indication: Device related infection
     Dosage: UNK
     Route: 065
     Dates: start: 20170102
  9. TIGECYCLINE [Suspect]
     Active Substance: TIGECYCLINE
     Indication: Device related infection
     Dosage: 50 MG, UNK
     Route: 065
     Dates: start: 20181002
  10. FOSFOMYCIN [Suspect]
     Active Substance: FOSFOMYCIN
     Indication: Device related infection
     Dosage: 4 GRAM, TID
     Route: 065
     Dates: start: 2019, end: 2019
  11. FOSFOMYCIN [Suspect]
     Active Substance: FOSFOMYCIN
     Dosage: 4 G IN 100 ML WATER FOR INJECTION, ADMINISTERED INTRAVENOUSLY THREE TIMES A DAY
     Route: 065
     Dates: start: 2020
  12. DALBAVANCIN [Suspect]
     Active Substance: DALBAVANCIN
     Indication: Device related infection
     Dosage: 1.5 GRAM, UNK (TWO TIMES, ONE WEEK APART)
     Route: 065
     Dates: start: 2019
  13. AVIBACTAM SODIUM\CEFTAZIDIME [Suspect]
     Active Substance: AVIBACTAM SODIUM\CEFTAZIDIME
     Indication: Device related infection
     Dosage: UNK (2/0.5 G IN 100 ML OF SALINE (0.9%) SOLUTION) THREE TIMES A DAY
     Route: 065
     Dates: start: 2020
  14. AVIBACTAM SODIUM\CEFTAZIDIME [Suspect]
     Active Substance: AVIBACTAM SODIUM\CEFTAZIDIME
     Dosage: REDUCED TO 1/0.25 G, THREE TIMES A DAY
     Route: 065
     Dates: start: 2020
  15. IRON [Concomitant]
     Active Substance: IRON
     Indication: Iron deficiency anaemia
     Dosage: UNK (LOAD)
     Route: 065
     Dates: start: 2018
  16. VITAMIN B12 [Concomitant]
     Active Substance: CYANOCOBALAMIN
     Indication: Iron deficiency anaemia
     Dosage: UNK
     Route: 030
     Dates: start: 2018
  17. ERYTHROPOIETIN [Concomitant]
     Active Substance: ERYTHROPOIETIN
     Indication: Iron deficiency anaemia
     Dosage: 10000 INTERNATIONAL UNIT, UNK
     Route: 065
     Dates: start: 2018
  18. SALINE [Concomitant]
     Active Substance: SODIUM CHLORIDE
     Indication: Vehicle solution use
     Dosage: 100 MG, UNK (WITH CEFTOLOZANE/TAZOBACTAM)
     Route: 065
     Dates: start: 2019, end: 2019
  19. SALINE [Concomitant]
     Active Substance: SODIUM CHLORIDE
     Dosage: WITH CEFTAZIDIME/AVIBACTAM
     Route: 065
     Dates: start: 2020
  20. DEXTROSE [Concomitant]
     Active Substance: DEXTROSE
     Indication: Product used for unknown indication
     Dosage: 500 MILLILITER, UNK
     Route: 065
     Dates: start: 2020
  21. POTASSIUM [Concomitant]
     Active Substance: POTASSIUM
     Indication: Mineral supplementation
     Dosage: 80 MILLIEQUIVALENT
     Route: 065
     Dates: start: 2020

REACTIONS (2)
  - Drug ineffective for unapproved indication [Unknown]
  - Off label use [Unknown]
